FAERS Safety Report 7258018-X (Version None)
Quarter: 2011Q1

REPORT INFORMATION
  Report Type: 
  Country: None (occurrence: None)
  Receive Date: 20110129
  Receipt Date: 20100615
  Transmission Date: 20110831
  Serious: No
  Sender: FDA-Public Use
  Company Number: US-ABBOTT-10P-163-0651598-00

PATIENT
  Sex: Female

DRUGS (10)
  1. PENTASA [Concomitant]
     Indication: CROHN'S DISEASE
  2. SERTRALINE HYDROCHLORIDE [Concomitant]
     Indication: DEPRESSION
  3. AMBIEN [Concomitant]
     Indication: INSOMNIA
     Dosage: AT BEDTIME
  4. IMIPRAMINE [Concomitant]
     Indication: DEPRESSION
  5. MULTI-VITAMINS [Concomitant]
     Indication: PRODUCT USED FOR UNKNOWN INDICATION
  6. HUMIRA [Suspect]
  7. HUMIRA [Suspect]
     Dates: start: 20100415
  8. PRILOSEC OTC [Concomitant]
     Indication: GASTROOESOPHAGEAL REFLUX DISEASE
     Dosage: DAILY
  9. XANAX [Concomitant]
     Indication: ANXIETY
     Dosage: DAILY
  10. HUMIRA [Suspect]
     Indication: CROHN'S DISEASE
     Dates: start: 20100401

REACTIONS (2)
  - ALOPECIA [None]
  - ARTHRALGIA [None]
